FAERS Safety Report 9485588 (Version 1)
Quarter: 2013Q3

REPORT INFORMATION
  Report Type: Spontaneous
  Country: DE (occurrence: DE)
  Receive Date: 20130829
  Receipt Date: 20130829
  Transmission Date: 20140515
  Serious: Yes (Other)
  Sender: FDA-Public Use
  Company Number: DE-009507513-1308DEU011912

PATIENT
  Sex: Female

DRUGS (1)
  1. INEGY [Suspect]
     Route: 048

REACTIONS (3)
  - Deafness [Unknown]
  - Drug intolerance [Unknown]
  - Dry mouth [Unknown]
